FAERS Safety Report 18180684 (Version 1)
Quarter: 2020Q3

REPORT INFORMATION
  Report Type: Spontaneous
  Country: NL (occurrence: NL)
  Receive Date: 20200821
  Receipt Date: 20200821
  Transmission Date: 20201103
  Serious: Yes (Other)
  Sender: FDA-Public Use
  Company Number: NL-TEVA-2020-NL-1816107

PATIENT
  Sex: Female
  Weight: 90 kg

DRUGS (1)
  1. OXAZEPAM TABLET 10MG / BRAND NAME NOT SPECIFIED [Suspect]
     Active Substance: OXAZEPAM
     Indication: RESTLESSNESS
     Dosage: 10 MILLIGRAM DAILY; THERAPY END DATE : ASKU
     Dates: start: 2020

REACTIONS (2)
  - Suicidal ideation [Not Recovered/Not Resolved]
  - Depressed mood [Not Recovered/Not Resolved]
